FAERS Safety Report 5415347-X (Version None)
Quarter: 2007Q3

REPORT INFORMATION
  Report Type: 
  Country: None (occurrence: None)
  Receive Date: 20070815
  Receipt Date: 20070810
  Transmission Date: 20080115
  Serious: Yes (Hospitalization)
  Sender: FDA-Public Use
  Company Number: AU-AVENTIS-200713921EU

PATIENT
  Age: 80 Year
  Sex: Female

DRUGS (6)
  1. INDAPAMIDE [Suspect]
     Indication: DRUG USE FOR UNKNOWN INDICATION
     Route: 048
     Dates: end: 20061123
  2. GABAPENTIN [Suspect]
     Indication: DRUG USE FOR UNKNOWN INDICATION
     Route: 048
  3. OXYCODONE HCL [Concomitant]
  4. AMITRIPTYLINE HYDROCHLORIDE [Concomitant]
  5. PROCHLORPERAZINE MALEATE [Concomitant]
  6. COVERSYL                           /00790701/ [Concomitant]
     Route: 048

REACTIONS (4)
  - DELUSION [None]
  - HEADACHE [None]
  - HYPOKALAEMIA [None]
  - TACHYCARDIA [None]
